FAERS Safety Report 26115297 (Version 2)
Quarter: 2025Q4

REPORT INFORMATION
  Report Type: Spontaneous
  Country: CA (occurrence: CA)
  Receive Date: 20251203
  Receipt Date: 20251219
  Transmission Date: 20260117
  Serious: Yes (Other)
  Sender: TEVA
  Company Number: CA-TEVA-VS-3399032

PATIENT
  Age: 59 Year
  Sex: Female

DRUGS (4)
  1. TOBRAMYCIN [Suspect]
     Active Substance: TOBRAMYCIN
     Indication: Escherichia infection
     Route: 014
  2. VANCOMYCIN [Concomitant]
     Active Substance: VANCOMYCIN
     Indication: Escherichia infection
     Dosage: RECEIVED AS ANTIBIOTIC-IMPREGNATED CEMENT SPACER
     Route: 014
  3. GENTAMICIN [Suspect]
     Active Substance: GENTAMICIN
     Indication: Escherichia infection
     Dosage: BONE ABSCESS CAVITY WAS ALSO FILLED WITH TOBRAMYCIN-CONTAINING COMMERCIAL BONE FILLER
     Route: 014
  4. PIPERACILLIN AND TAZOBACTAM [Concomitant]
     Active Substance: PIPERACILLIN SODIUM\TAZOBACTAM SODIUM
     Indication: Escherichia infection
     Dosage: RECEIVED AS ANTIBIOTIC-IMPREGNATED CEMENT SPACER
     Route: 014

REACTIONS (2)
  - Toxicity to various agents [Recovered/Resolved]
  - Acute kidney injury [Recovered/Resolved]
